APPROVED DRUG PRODUCT: BUPRENORPHINE HYDROCHLORIDE AND NALOXONE HYDROCHLORIDE
Active Ingredient: BUPRENORPHINE HYDROCHLORIDE; NALOXONE HYDROCHLORIDE
Strength: EQ 8MG BASE;EQ 2MG BASE
Dosage Form/Route: TABLET;SUBLINGUAL
Application: A091149 | Product #002
Applicant: TEVA PHARMACEUTICALS USA
Approved: Sep 8, 2014 | RLD: No | RS: No | Type: DISCN